FAERS Safety Report 4958010-1 (Version None)
Quarter: 2006Q1

REPORT INFORMATION
  Report Type: 
  Country: None (occurrence: None)
  Receive Date: 20060330
  Receipt Date: 20060217
  Transmission Date: 20060701
  Serious: Yes (Hospitalization, Other)
  Sender: FDA-Public Use
  Company Number: US-MERCK-0602USA04820

PATIENT
  Age: 62 Year
  Sex: Female
  Weight: 77 kg

DRUGS (46)
  1. VIOXX [Suspect]
     Indication: BACK PAIN
     Route: 048
     Dates: start: 19991001, end: 20050301
  2. VIOXX [Suspect]
     Indication: PAIN IN EXTREMITY
     Route: 048
     Dates: start: 19991001, end: 20050301
  3. WARFARIN [Concomitant]
     Route: 065
  4. ALBUTEROL [Concomitant]
     Route: 065
  5. LIPITOR [Concomitant]
     Route: 065
  6. COZAAR [Concomitant]
     Route: 048
  7. DILTIAZEM HYDROCHLORIDE [Concomitant]
     Route: 065
  8. CEPHALEXIN [Concomitant]
     Route: 065
  9. FLONASE [Concomitant]
     Route: 065
  10. PROTONIX [Concomitant]
     Route: 065
  11. TRIAZOLAM [Concomitant]
     Route: 065
  12. ACETAMINOPHEN AND HYDROCODONE BITARTRATE [Concomitant]
     Route: 065
  13. AMBIEN [Concomitant]
     Route: 065
  14. ACETAMINOPHEN AND PROPOXYPHENE NAPSYLATE [Concomitant]
     Route: 065
  15. GLUCOTROL [Concomitant]
     Route: 065
  16. CARTIA (DILTIAZEM HYDROCHLORIDE) [Concomitant]
     Route: 065
  17. PRILOSEC [Concomitant]
     Route: 048
  18. ATACAND [Concomitant]
     Route: 065
  19. DIOVAN [Concomitant]
     Route: 065
  20. LASIX [Concomitant]
     Route: 065
  21. CLARITIN [Concomitant]
     Route: 065
  22. VICOPROFEN [Concomitant]
     Route: 065
  23. BENZONATATE [Concomitant]
     Route: 065
  24. ULTRAM [Concomitant]
     Route: 065
  25. DITROPAN [Concomitant]
     Route: 065
  26. PREMARIN [Concomitant]
     Route: 065
  27. ZOCOR [Concomitant]
     Route: 048
  28. PLAVIX [Concomitant]
     Route: 065
  29. NEURONTIN [Concomitant]
     Route: 065
  30. AMARYL [Concomitant]
     Route: 065
  31. OXYBUTIN [Concomitant]
     Route: 065
  32. DILTIAZEM [Concomitant]
     Route: 065
  33. ATROVENT [Concomitant]
     Route: 065
  34. HYZAAR [Concomitant]
     Route: 048
  35. ALLEGRA [Concomitant]
     Route: 065
  36. TOPAMAX [Concomitant]
     Route: 065
  37. COUMADIN [Concomitant]
     Route: 065
  38. LEVSIN [Concomitant]
     Route: 065
  39. LACTULOSE [Concomitant]
     Route: 065
  40. ZELNORM [Concomitant]
     Route: 065
  41. TEQUIN [Concomitant]
     Route: 065
  42. COREG [Concomitant]
     Route: 065
  43. ARICEPT [Concomitant]
     Route: 065
  44. KLOR-CON [Concomitant]
     Route: 065
  45. SONATA [Concomitant]
     Route: 065
  46. FERROUS SULFATE [Concomitant]
     Route: 065

REACTIONS (13)
  - ASTHMA [None]
  - BALANCE DISORDER [None]
  - CEREBROVASCULAR ACCIDENT [None]
  - DEPRESSION [None]
  - DIABETES MELLITUS [None]
  - DIZZINESS [None]
  - DYSPHAGIA [None]
  - DYSPNOEA [None]
  - GASTROOESOPHAGEAL REFLUX DISEASE [None]
  - HYPERTENSION [None]
  - INTERVERTEBRAL DISC DISORDER [None]
  - PNEUMONIA [None]
  - SPINAL DISORDER [None]
